FAERS Safety Report 13900836 (Version 1)
Quarter: 2017Q3

REPORT INFORMATION
  Report Type: Spontaneous
  Country: DE (occurrence: DE)
  Receive Date: 20170823
  Receipt Date: 20170823
  Transmission Date: 20171127
  Serious: Yes (Hospitalization)
  Sender: FDA-Public Use
  Company Number: DE-ABBVIE-17K-062-2079179-00

PATIENT
  Sex: Female

DRUGS (2)
  1. ALLERGOVIT /07493701/ [Interacting]
     Active Substance: ALLERGENIC EXTRACTS
     Indication: HYPERSENSITIVITY
     Route: 065
  2. HUMIRA [Suspect]
     Active Substance: ADALIMUMAB
     Indication: COLITIS ULCERATIVE
     Route: 058
     Dates: start: 2016

REACTIONS (2)
  - Anaphylactic shock [Unknown]
  - Drug interaction [Unknown]

NARRATIVE: CASE EVENT DATE: 2017
